FAERS Safety Report 20710782 (Version 1)
Quarter: 2022Q2

REPORT INFORMATION
  Report Type: Report from Study
  Country: IT (occurrence: None)
  Receive Date: 20220414
  Receipt Date: 20220414
  Transmission Date: 20220721
  Serious: Yes (Hospitalization)
  Sender: FDA-Public Use
  Company Number: IT-ROCHE-3068295

PATIENT
  Age: 60 Year
  Sex: Female
  Weight: 62 kg

DRUGS (8)
  1. ATEZOLIZUMAB [Suspect]
     Active Substance: ATEZOLIZUMAB
     Indication: Small cell lung cancer
     Dosage: ON 26/JAN/2022, LAST DOSE WAS ADMINISTERED PRIOR TO AE.
     Route: 041
     Dates: start: 20211201
  2. BEVACIZUMAB [Suspect]
     Active Substance: BEVACIZUMAB
     Indication: Small cell lung cancer
     Dosage: ON 26/JAN/2022, LAST DOSE WAS ADMINISTERED PRIOR TO AE.
     Route: 042
     Dates: start: 20211201
  3. CARBOPLATIN [Suspect]
     Active Substance: CARBOPLATIN
     Indication: Small cell lung cancer
     Dosage: ON 26/JAN/2022. LAST DOSE WAS ADMINISTERED PRIOR TO AE.
     Route: 042
     Dates: start: 20211201
  4. ETOPOSIDE [Suspect]
     Active Substance: ETOPOSIDE
     Indication: Small cell lung cancer
     Dosage: ON 27/JAN/2022, LAST DOSE WAS ADMINISTERED PRIOR TO AE.
     Route: 042
     Dates: start: 20211201
  5. NEBIVOLOL HYDROCHLORIDE [Concomitant]
     Active Substance: NEBIVOLOL HYDROCHLORIDE
     Indication: Hypertension
     Dosage: 5 MG/OLIE
     Dates: start: 20210601
  6. CARDURA [Concomitant]
     Active Substance: DOXAZOSIN MESYLATE
     Indication: Hypertension
     Dosage: 2 MG/OLIE
     Dates: start: 20210601
  7. ERYTHROPOIETIN [Concomitant]
     Active Substance: ERYTHROPOIETIN
     Indication: Anaemia
     Dosage: 40000 ULI
     Dates: start: 20220215, end: 20220218
  8. ENOXAPARIN SODIUM [Concomitant]
     Active Substance: ENOXAPARIN SODIUM
     Dosage: 4000 ULI
     Dates: start: 20211108, end: 20220218

REACTIONS (3)
  - Asthenia [Not Recovered/Not Resolved]
  - Pyrexia [Recovered/Resolved with Sequelae]
  - Diarrhoea [Recovered/Resolved with Sequelae]

NARRATIVE: CASE EVENT DATE: 20220219
